FAERS Safety Report 4457022-4 (Version None)
Quarter: 2004Q3

REPORT INFORMATION
  Report Type: 
  Country: None (occurrence: None)
  Receive Date: 20040923
  Receipt Date: 20040916
  Transmission Date: 20050211
  Serious: Yes (Hospitalization)
  Sender: FDA-Public Use
  Company Number: FR-GLAXOSMITHKLINE-B0345606A

PATIENT
  Age: 81 Year
  Sex: Male

DRUGS (9)
  1. CLAMOXYL [Suspect]
     Dosage: 1G TWICE PER DAY
     Route: 048
     Dates: start: 20040820, end: 20040822
  2. MONICOR [Concomitant]
     Route: 048
  3. ASPIRIN [Concomitant]
     Route: 048
  4. SERMION [Concomitant]
     Route: 048
  5. LASIX [Concomitant]
  6. SPIROCTAN [Concomitant]
     Route: 048
  7. HEPTAMYL [Concomitant]
     Route: 048
  8. TEMESTA [Concomitant]
     Route: 048
  9. AMIODARONE [Concomitant]
     Route: 048

REACTIONS (3)
  - ERYTHEMA [None]
  - PURPURA [None]
  - PYREXIA [None]
